FAERS Safety Report 13751616 (Version 1)
Quarter: 2017Q3

REPORT INFORMATION
  Report Type: Spontaneous
  Country: US (occurrence: US)
  Receive Date: 20170713
  Receipt Date: 20170713
  Transmission Date: 20171127
  Serious: No
  Sender: FDA-Public Use
  Company Number: US-ASTELLAS-2017US020596

PATIENT
  Sex: Male

DRUGS (1)
  1. MYRBETRIQ [Suspect]
     Active Substance: MIRABEGRON
     Indication: HYPERTONIC BLADDER
     Dosage: UNK, AT BEDTIME
     Route: 065

REACTIONS (3)
  - Nervous system disorder [Recovering/Resolving]
  - Paraesthesia [Not Recovered/Not Resolved]
  - Back pain [Recovering/Resolving]
